FAERS Safety Report 13780338 (Version 1)
Quarter: 2017Q3

REPORT INFORMATION
  Report Type: Spontaneous
  Country: US (occurrence: US)
  Receive Date: 20170724
  Receipt Date: 20170724
  Transmission Date: 20171127
  Serious: No
  Sender: FDA-Public Use
  Company Number: US-SHIRE-US201713868

PATIENT

DRUGS (2)
  1. RESTASIS [Suspect]
     Active Substance: CYCLOSPORINE
     Indication: DRY EYE
     Dosage: UNK
     Route: 047
  2. XIIDRA [Suspect]
     Active Substance: LIFITEGRAST
     Indication: DRY EYE
     Dosage: 1 GTT, UNK
     Route: 047

REACTIONS (7)
  - Vision blurred [Unknown]
  - Dysgeusia [Unknown]
  - Drug ineffective [Unknown]
  - Lacrimation decreased [Unknown]
  - Visual impairment [Unknown]
  - Instillation site reaction [Unknown]
  - Instillation site pain [Unknown]
